FAERS Safety Report 6876776-0 (Version None)
Quarter: 2010Q3

REPORT INFORMATION
  Report Type: 
  Country: None (occurrence: None)
  Receive Date: 20100727
  Receipt Date: 20100720
  Transmission Date: 20110219
  Serious: Yes (Other)
  Sender: FDA-Public Use
  Company Number: BR-ROCHE-702373

PATIENT
  Sex: Female
  Weight: 79 kg

DRUGS (2)
  1. BONIVA [Suspect]
     Indication: OSTEOPOROSIS
     Route: 048
     Dates: start: 20070101
  2. TYLEX [Suspect]
     Indication: ANTIINFLAMMATORY THERAPY
     Dosage: 1 TABLET AT NIGHT
     Route: 048
     Dates: start: 20100502

REACTIONS (4)
  - ABDOMINAL PAIN UPPER [None]
  - BONE LESION [None]
  - DYSPEPSIA [None]
  - FALL [None]
